FAERS Safety Report 25655650 (Version 1)
Quarter: 2025Q3

REPORT INFORMATION
  Report Type: Spontaneous
  Country: US (occurrence: US)
  Receive Date: 20250807
  Receipt Date: 20250807
  Transmission Date: 20251021
  Serious: No
  Sender: COSETTE PHARMACEUTICALS INC
  Company Number: US-COSETTE-CP2025US000727

PATIENT

DRUGS (4)
  1. NYSTATIN [Suspect]
     Active Substance: NYSTATIN
     Indication: Rash
     Route: 065
  2. AQUAPHOR (XIPAMIDE) [Concomitant]
     Active Substance: XIPAMIDE
     Route: 065
  3. AVEENO [Concomitant]
     Active Substance: DIMETHICONE\HOMOSALATE\OCTINOXATE\OCTISALATE\TITANIUM DIOXIDE
     Route: 065
  4. BABY POWDER [TALC] [Concomitant]
     Route: 065

REACTIONS (1)
  - Drug ineffective [Unknown]
